FAERS Safety Report 5521383-5 (Version None)
Quarter: 2007Q4

REPORT INFORMATION
  Report Type: 
  Country: None (occurrence: None)
  Receive Date: 20071119
  Receipt Date: 20071109
  Transmission Date: 20080405
  Serious: Yes (Other)
  Sender: FDA-Public Use
  Company Number: GB-ABBOTT-07P-167-0424154-00

PATIENT
  Sex: Female

DRUGS (1)
  1. HUMIRA [Suspect]
     Indication: RHEUMATOID ARTHRITIS

REACTIONS (6)
  - ANGINA PECTORIS [None]
  - ASTHMA [None]
  - CHEST PAIN [None]
  - INJECTION SITE BRUISING [None]
  - RHEUMATOID ARTHRITIS [None]
  - WHEEZING [None]
